FAERS Safety Report 21805310 (Version 2)
Quarter: 2023Q1

REPORT INFORMATION
  Report Type: Report from Study
  Country: US (occurrence: US)
  Receive Date: 20230102
  Receipt Date: 20230310
  Transmission Date: 20230418
  Serious: Yes (Other)
  Sender: FDA-Public Use
  Company Number: US-002147023-NVSC2022US300076

PATIENT
  Age: 53 Year
  Sex: Male

DRUGS (1)
  1. COSENTYX [Suspect]
     Active Substance: SECUKINUMAB
     Indication: Psoriatic arthropathy
     Dosage: 150 MG, QMO
     Route: 058
     Dates: start: 202107

REACTIONS (8)
  - Erectile dysfunction [Unknown]
  - Peripheral swelling [Unknown]
  - Overweight [Unknown]
  - Osteoarthritis [Unknown]
  - Tendonitis [Unknown]
  - Tenderness [Unknown]
  - Tenosynovitis [Unknown]
  - Foot deformity [Unknown]

NARRATIVE: CASE EVENT DATE: 20211217
